FAERS Safety Report 22393477 (Version 1)
Quarter: 2023Q2

REPORT INFORMATION
  Report Type: Spontaneous
  Country: US (occurrence: None)
  Receive Date: 20230531
  Receipt Date: 20230531
  Transmission Date: 20230722
  Serious: Yes (Other)
  Sender: FDA-Public Use
  Company Number: None

PATIENT
  Age: 53 Year
  Sex: Female
  Weight: 2.38 kg

DRUGS (1)
  1. HYDROCORTISONE AND ACETIC ACID [Suspect]
     Active Substance: ACETIC ACID\HYDROCORTISONE
     Indication: Ear infection
     Dosage: 3 DROPS 4 TIMES A DAY AURICULAR (OTIC)?
     Route: 001
     Dates: start: 20230215, end: 20230322

REACTIONS (1)
  - Pain [None]

NARRATIVE: CASE EVENT DATE: 20230214
